FAERS Safety Report 6775555-2 (Version None)
Quarter: 2010Q2

REPORT INFORMATION
  Report Type: 
  Country: None (occurrence: None)
  Receive Date: 20100617
  Receipt Date: 20100608
  Transmission Date: 20101027
  Serious: Yes (Hospitalization)
  Sender: FDA-Public Use
  Company Number: US-SHIRE-ALL1-2010-03252

PATIENT

DRUGS (8)
  1. FOSRENOL [Suspect]
     Indication: RENAL FAILURE
     Dosage: 1000 MG, OTHER (WITH MEALS DAILY)
     Route: 048
     Dates: start: 20100318
  2. FOSRENOL [Suspect]
     Indication: HYPERPHOSPHATAEMIA
  3. CARVEDILOL [Concomitant]
     Indication: CORONARY ARTERY DISEASE
     Dosage: 12.5 MG, 1X/DAY:QD
     Route: 048
     Dates: start: 20070828
  4. JANUVIA [Concomitant]
     Indication: DIABETES MELLITUS
     Dosage: UNK, UNKNOWN
     Route: 048
  5. NITROGLYCERIN [Concomitant]
     Indication: CORONARY ARTERY DISEASE
     Dosage: UNK, AS REQ'D
     Route: 060
     Dates: start: 20070828
  6. RENA-VITE [Concomitant]
     Indication: DRUG USE FOR UNKNOWN INDICATION
     Dosage: UNK, UNKNOWN
     Route: 048
  7. PERCOCET [Concomitant]
     Indication: PAIN
     Dosage: UNK, UNKNOWN
     Route: 048
     Dates: start: 20091201
  8. FENTANYL [Concomitant]
     Indication: PAIN
     Dosage: UNK, UNKNOWN
     Route: 062
     Dates: start: 20091201

REACTIONS (2)
  - CONVULSION [None]
  - PAIN IN EXTREMITY [None]
